FAERS Safety Report 5402559-4 (Version None)
Quarter: 2007Q3

REPORT INFORMATION
  Report Type: 
  Country: None (occurrence: None)
  Receive Date: 20070801
  Receipt Date: 20061212
  Transmission Date: 20080115
  Serious: No
  Sender: FDA-Public Use
  Company Number: A0631310A

PATIENT
  Age: 39 Year
  Sex: Female

DRUGS (15)
  1. IMITREX [Suspect]
     Indication: MIGRAINE
     Route: 048
     Dates: end: 20060101
  2. ALBUTEROL [Concomitant]
  3. SINGULAIR [Concomitant]
  4. CITALOPRAM HYDROBROMIDE [Concomitant]
  5. ADVAIR DISKUS 100/50 [Concomitant]
  6. RANITIDINE [Concomitant]
  7. PEPCID [Concomitant]
  8. VISTARIL [Concomitant]
  9. STRATTERA [Concomitant]
  10. ADDERALL 10 [Concomitant]
  11. HYDROCHLOROTHIAZIDE [Concomitant]
  12. ENALAPRIL MALEATE [Concomitant]
  13. ALLEGRA [Concomitant]
  14. SPIRONOLACTONE [Concomitant]
  15. EPIPEN [Concomitant]

REACTIONS (3)
  - CONFUSIONAL STATE [None]
  - STOMACH DISCOMFORT [None]
  - URTICARIA [None]
